FAERS Safety Report 6705133-2 (Version None)
Quarter: 2010Q2

REPORT INFORMATION
  Report Type: 
  Country: None (occurrence: None)
  Receive Date: 20100430
  Receipt Date: 20100226
  Transmission Date: 20101027
  Serious: No
  Sender: FDA-Public Use
  Company Number: US-ASTRAZENECA-2010SE08592

PATIENT
  Age: 48 Year
  Sex: Female

DRUGS (5)
  1. NEXIUM [Suspect]
     Indication: HIATUS HERNIA
     Route: 048
     Dates: start: 20050101
  2. NEXIUM [Suspect]
     Route: 048
  3. LISINOPRIL [Concomitant]
  4. PRAVASTATIN [Concomitant]
  5. PROZAC [Concomitant]

REACTIONS (2)
  - FLATULENCE [None]
  - INCORRECT DOSE ADMINISTERED [None]
